FAERS Safety Report 5496608-5 (Version None)
Quarter: 2007Q4

REPORT INFORMATION
  Report Type: 
  Country: None (occurrence: None)
  Receive Date: 20071025
  Receipt Date: 20070625
  Transmission Date: 20080405
  Serious: No
  Sender: FDA-Public Use
  Company Number: A0659976A

PATIENT
  Age: 66 Year
  Sex: Female

DRUGS (8)
  1. ADVAIR DISKUS 100/50 [Suspect]
     Indication: ASTHMA
     Route: 055
  2. FLOVENT [Suspect]
     Indication: ASTHMA
     Dosage: 110MCG TWICE PER DAY
     Route: 055
     Dates: start: 20060923
  3. XOPENEX [Concomitant]
  4. PREDNISONE [Concomitant]
  5. FLONASE [Concomitant]
  6. SINGULAIR [Concomitant]
  7. PULMICORT [Concomitant]
  8. CORTISONE ACETATE TAB [Concomitant]

REACTIONS (3)
  - GLOSSODYNIA [None]
  - HEART RATE INCREASED [None]
  - PHARYNGOLARYNGEAL PAIN [None]
